FAERS Safety Report 8249534-2 (Version None)
Quarter: 2012Q1

REPORT INFORMATION
  Report Type: 
  Country: None (occurrence: None)
  Receive Date: 20120327
  Receipt Date: 20120315
  Transmission Date: 20120608
  Serious: Yes (Hospitalization)
  Sender: FDA-Public Use
  Company Number: DSA_55715_2012

PATIENT
  Age: 66 Year
  Sex: Female

DRUGS (3)
  1. ROCEPHIN [Concomitant]
  2. FLAGYL [Suspect]
     Indication: POSTOPERATIVE WOUND INFECTION
     Dosage: 500 MG TID INTRAVENOUS BOLUS, 500 MG TID INTRAVENOUS BOLUS
     Route: 040
     Dates: start: 20111208, end: 20111213
  3. FLAGYL [Suspect]
     Indication: POSTOPERATIVE WOUND INFECTION
     Dosage: 500 MG TID INTRAVENOUS BOLUS, 500 MG TID INTRAVENOUS BOLUS
     Route: 040
     Dates: start: 20111025, end: 20111104

REACTIONS (8)
  - POLYNEUROPATHY [None]
  - SYSTEMIC INFLAMMATORY RESPONSE SYNDROME [None]
  - ENTEROBACTER INFECTION [None]
  - ENTEROCOCCUS TEST POSITIVE [None]
  - STAPHYLOCOCCAL INFECTION [None]
  - RENAL ARTERY THROMBOSIS [None]
  - LERICHE SYNDROME [None]
  - ISCHAEMIA [None]
